FAERS Safety Report 22229019 (Version 1)
Quarter: 2023Q2

REPORT INFORMATION
  Report Type: Spontaneous
  Country: US (occurrence: US)
  Receive Date: 20230419
  Receipt Date: 20230419
  Transmission Date: 20230721
  Serious: No
  Sender: FDA-Public Use
  Company Number: US-SCILEX PHARMACEUTICALS INC.-2022SCX00043

PATIENT
  Age: 72 Year
  Sex: Female

DRUGS (1)
  1. ZTLIDO [Suspect]
     Active Substance: LIDOCAINE
     Dosage: UNK UNK, ONCE ON THE UPPER ARM
     Route: 061
     Dates: start: 20221227, end: 20221227

REACTIONS (6)
  - Feeling abnormal [Unknown]
  - Application site bruise [Not Recovered/Not Resolved]
  - Application site swelling [Unknown]
  - Application site papules [Recovering/Resolving]
  - Application site pain [Unknown]
  - Product adhesion issue [Unknown]

NARRATIVE: CASE EVENT DATE: 20221227
